FAERS Safety Report 10182361 (Version 6)
Quarter: 2014Q3

REPORT INFORMATION
  Report Type: Report from Study
  Country: US (occurrence: US)
  Receive Date: 20140520
  Receipt Date: 20140721
  Transmission Date: 20150326
  Serious: Yes (Hospitalization, Other)
  Sender: FDA-Public Use
  Company Number: US-ALEXION-A201401763

PATIENT

DRUGS (2)
  1. CYCLOSPORINE. [Concomitant]
     Active Substance: CYCLOSPORINE
     Indication: IMMUNOSUPPRESSANT DRUG THERAPY
     Dosage: UNK
     Route: 065
     Dates: start: 20120801
  2. SOLIRIS [Suspect]
     Active Substance: ECULIZUMAB
     Indication: PAROXYSMAL NOCTURNAL HAEMOGLOBINURIA
     Dosage: 900 MG, Q2W
     Route: 042
     Dates: start: 20131029

REACTIONS (12)
  - Fatigue [Not Recovered/Not Resolved]
  - Dysuria [Not Recovered/Not Resolved]
  - Haematuria [Not Recovered/Not Resolved]
  - Aplastic anaemia [Not Recovered/Not Resolved]
  - Haemolysis [Unknown]
  - Asthenia [Unknown]
  - Swelling face [Unknown]
  - Haemoglobin decreased [Unknown]
  - Peripheral swelling [Unknown]
  - Drug ineffective [Unknown]
  - Bone pain [Not Recovered/Not Resolved]
  - Paroxysmal nocturnal haemoglobinuria [Unknown]

NARRATIVE: CASE EVENT DATE: 20140526
